FAERS Safety Report 4613037-4 (Version None)
Quarter: 2005Q1

REPORT INFORMATION
  Report Type: 
  Country: None (occurrence: None)
  Receive Date: 20050318
  Receipt Date: 20050310
  Transmission Date: 20050727
  Serious: Yes (Other)
  Sender: FDA-Public Use
  Company Number: US-MERCK-0503USA01610

PATIENT
  Age: 76 Year
  Sex: Male

DRUGS (5)
  1. VIOXX [Suspect]
     Indication: ARTHRITIS
     Route: 048
     Dates: start: 20030101, end: 20030601
  2. NORVASC [Concomitant]
     Route: 065
  3. PLAVIX [Concomitant]
     Route: 065
  4. PREVACID [Concomitant]
     Route: 065
  5. COSOPT [Concomitant]
     Route: 047

REACTIONS (2)
  - CEREBROVASCULAR ACCIDENT [None]
  - TRANSIENT ISCHAEMIC ATTACK [None]
